FAERS Safety Report 10069382 (Version 2)
Quarter: 2014Q2

REPORT INFORMATION
  Report Type: Spontaneous
  Country: US (occurrence: US)
  Receive Date: 20140410
  Receipt Date: 20140415
  Transmission Date: 20141212
  Serious: No
  Sender: FDA-Public Use
  Company Number: US-009507513-1404USA000985

PATIENT
  Sex: Male

DRUGS (4)
  1. JANUMET XR [Suspect]
     Indication: DIABETES MELLITUS
     Dosage: 1 DF, QD
     Route: 048
     Dates: start: 20140217
  2. METFORMIN [Concomitant]
  3. GLIMEPIRIDE [Concomitant]
  4. VICTOZA [Concomitant]

REACTIONS (3)
  - Blood glucose increased [Not Recovered/Not Resolved]
  - Inappropriate schedule of drug administration [Unknown]
  - Wrong technique in drug usage process [Unknown]
